FAERS Safety Report 7300036-7 (Version None)
Quarter: 2011Q1

REPORT INFORMATION
  Report Type: 
  Country: None (occurrence: None)
  Receive Date: 20110217
  Receipt Date: 20110211
  Transmission Date: 20110831
  Serious: Yes (Hospitalization, Other)
  Sender: FDA-Public Use
  Company Number: US-AMGEN-USASP2011008523

PATIENT
  Age: 83 Year
  Sex: Male

DRUGS (7)
  1. DOXORUBICIN [Concomitant]
     Dosage: UNK
     Dates: start: 20101025
  2. NEUPOGEN [Suspect]
     Indication: NEUTROPENIA
     Dates: start: 20101027
  3. NEULASTA [Suspect]
     Indication: CHEMOTHERAPY
     Dosage: 6 MG, UNK
     Dates: start: 20101117
  4. RITUXIMAB [Concomitant]
     Dosage: UNK
     Dates: start: 20101025
  5. VINCRISTINE [Concomitant]
     Dosage: UNK
     Dates: start: 20101025
  6. PREDNISONE [Concomitant]
     Dosage: UNK
     Dates: start: 20101025
  7. CYCLOPHOSPHAMIDE [Concomitant]
     Dosage: UNK
     Dates: start: 20101025

REACTIONS (2)
  - WHITE BLOOD CELL COUNT DECREASED [None]
  - FEBRILE NEUTROPENIA [None]
